FAERS Safety Report 4694318-5 (Version None)
Quarter: 2005Q2

REPORT INFORMATION
  Report Type: 
  Country: None (occurrence: None)
  Receive Date: 20050620
  Receipt Date: 20050513
  Transmission Date: 20051028
  Serious: Yes (Other)
  Sender: FDA-Public Use
  Company Number: FR-AMGEN-UK132430

PATIENT
  Sex: Male
  Weight: 57 kg

DRUGS (7)
  1. MIMPARA [Suspect]
     Indication: HYPERPARATHYROIDISM SECONDARY
     Route: 048
     Dates: start: 20050124
  2. PLAVIX [Concomitant]
     Route: 048
     Dates: start: 20041109
  3. ASPIRIN [Concomitant]
     Route: 048
     Dates: start: 20040901
  4. VALSARTAN [Concomitant]
     Route: 048
     Dates: start: 20041216
  5. CORVASAL [Concomitant]
     Route: 048
     Dates: start: 20041216
  6. ATORVASTATIN CALCIUM [Concomitant]
     Route: 048
     Dates: start: 20050113
  7. CALCIUM CARBONATE [Concomitant]
     Route: 048

REACTIONS (2)
  - GYNAECOMASTIA [None]
  - NIPPLE PAIN [None]
